FAERS Safety Report 15708090 (Version 1)
Quarter: 2018Q4

REPORT INFORMATION
  Report Type: Spontaneous
  Country: US (occurrence: US)
  Receive Date: 20181128
  Receipt Date: 20181128
  Transmission Date: 20190205
  Serious: Yes (Hospitalization)
  Sender: FDA-Public Use
  Company Number: None

PATIENT
  Sex: Female

DRUGS (1)
  1. BOTOX [Suspect]
     Active Substance: ONABOTULINUMTOXINA
     Indication: NECK PAIN
     Dosage: ?          OTHER FREQUENCY:EVERY 90 DAYS ;?
     Route: 030
     Dates: start: 20160408

REACTIONS (2)
  - Hospitalisation [None]
  - Rehabilitation therapy [None]
